FAERS Safety Report 8021142-8 (Version None)
Quarter: 2012Q1

REPORT INFORMATION
  Report Type: 
  Country: None (occurrence: None)
  Receive Date: 20120104
  Receipt Date: 20111229
  Transmission Date: 20120608
  Serious: No
  Sender: FDA-Public Use
  Company Number: US-PFIZER INC-2011316714

PATIENT
  Age: 51 Year
  Sex: Male
  Weight: 90.7 kg

DRUGS (1)
  1. ALAVERT [Suspect]
     Indication: HYPERSENSITIVITY
     Dosage: UNK, DAILY
     Route: 065
     Dates: start: 20110101, end: 20111201

REACTIONS (3)
  - GLOSSODYNIA [None]
  - SALIVARY GLAND PAIN [None]
  - SALIVARY GLAND ENLARGEMENT [None]
